FAERS Safety Report 16958412 (Version 1)
Quarter: 2019Q4

REPORT INFORMATION
  Report Type: Report from Study
  Country: BR (occurrence: BR)
  Receive Date: 20191024
  Receipt Date: 20191024
  Transmission Date: 20200122
  Serious: Yes (Hospitalization)
  Sender: FDA-Public Use
  Company Number: BR-TAKEDA-2018TUS028474

PATIENT
  Sex: Female

DRUGS (1)
  1. VEDOLIZUMAB [Suspect]
     Active Substance: VEDOLIZUMAB
     Indication: CROHN^S DISEASE
     Dosage: 300 MILLIGRAM, UNK
     Route: 042
     Dates: start: 20180726, end: 2019

REACTIONS (3)
  - Influenza [Unknown]
  - Off label use [Unknown]
  - Dehydration [Unknown]

NARRATIVE: CASE EVENT DATE: 2018
